FAERS Safety Report 18239646 (Version 4)
Quarter: 2023Q1

REPORT INFORMATION
  Report Type: Report from Study
  Country: US (occurrence: US)
  Receive Date: 20200907
  Receipt Date: 20230310
  Transmission Date: 20230418
  Serious: Yes (Disabling, Other)
  Sender: FDA-Public Use
  Company Number: US-ABBVIE-20K-163-3548226-00

PATIENT
  Age: 35 Year
  Sex: Female

DRUGS (6)
  1. DEPAKOTE [Suspect]
     Active Substance: DIVALPROEX SODIUM
     Indication: Product used for unknown indication
     Route: 048
  2. DEPAKOTE [Suspect]
     Active Substance: DIVALPROEX SODIUM
     Indication: Product used for unknown indication
     Route: 048
  3. AUBAGIO [Suspect]
     Active Substance: TERIFLUNOMIDE
     Indication: Relapsing-remitting multiple sclerosis
     Route: 048
     Dates: start: 20200309, end: 20200603
  4. VRAYLAR [Suspect]
     Active Substance: CARIPRAZINE
     Indication: Product used for unknown indication
     Route: 065
     Dates: start: 2020
  5. SEROQUEL [Concomitant]
     Active Substance: QUETIAPINE FUMARATE
     Indication: Product used for unknown indication
  6. TRAMADOL [Concomitant]
     Active Substance: TRAMADOL
     Indication: Product used for unknown indication
     Dosage: FORM STRENGTH: 50 MILLIGRAM?FREQUENCY TEXT: B.I.D. OR TWICE DAILY

REACTIONS (23)
  - Back pain [Not Recovered/Not Resolved]
  - Drug interaction [Unknown]
  - Impaired work ability [Not Recovered/Not Resolved]
  - Musculoskeletal disorder [Not Recovered/Not Resolved]
  - Arthralgia [Unknown]
  - Nerve injury [Unknown]
  - Spinal disorder [Not Recovered/Not Resolved]
  - Cartilage injury [Unknown]
  - Pain [Not Recovered/Not Resolved]
  - Chondropathy [Not Recovered/Not Resolved]
  - Product use in unapproved indication [Unknown]
  - High frequency ablation [Unknown]
  - Muscle discomfort [Not Recovered/Not Resolved]
  - Mobility decreased [Unknown]
  - Neuropathy peripheral [Unknown]
  - Muscle disorder [Recovered/Resolved]
  - Spondylitis [Unknown]
  - Sclerotherapy [Recovered/Resolved]
  - Arthralgia [Recovered/Resolved]
  - Pain [Not Recovered/Not Resolved]
  - Product dose omission issue [Unknown]
  - Incorrect dose administered [Unknown]
  - Off label use [Unknown]

NARRATIVE: CASE EVENT DATE: 20200401
